FAERS Safety Report 6013903-1 (Version None)
Quarter: 2008Q4

REPORT INFORMATION
  Report Type: 
  Country: None (occurrence: None)
  Receive Date: 20081219
  Receipt Date: 20081203
  Transmission Date: 20090506
  Serious: No
  Sender: FDA-Public Use
  Company Number: A0758971A

PATIENT
  Age: 80 Year
  Sex: Male

DRUGS (9)
  1. ADVAIR DISKUS 250/50 [Suspect]
     Indication: CHRONIC OBSTRUCTIVE PULMONARY DISEASE
     Dosage: 1PUFF TWICE PER DAY
     Route: 055
     Dates: start: 20071201
  2. SPIRIVA [Concomitant]
  3. AMIODARONE HCL [Concomitant]
  4. METOPROLOL [Concomitant]
  5. LOTREL [Concomitant]
  6. LOVAZA [Concomitant]
  7. MULTI-VITAMIN [Concomitant]
  8. CALCIUM [Concomitant]
  9. WARFARIN SODIUM [Concomitant]

REACTIONS (1)
  - DRY MOUTH [None]
